FAERS Safety Report 12882015 (Version 2)
Quarter: 2016Q4

REPORT INFORMATION
  Report Type: Spontaneous
  Country: US (occurrence: US)
  Receive Date: 20161025
  Receipt Date: 20161027
  Transmission Date: 20170207
  Serious: Yes (Hospitalization)
  Sender: FDA-Public Use
  Company Number: US-HORIZON-RAV-0220-2016

PATIENT
  Age: 3 Year
  Sex: Male

DRUGS (5)
  1. RAVICTI [Suspect]
     Active Substance: GLYCEROL PHENYLBUTYRATE
     Indication: ORNITHINE TRANSCARBAMOYLASE DEFICIENCY
     Dosage: 3 ML TID, 9 ML DAILY ORALLY
     Route: 048
     Dates: start: 20131127
  2. SOLCARB [Concomitant]
  3. L-CITRULLINE [Concomitant]
     Active Substance: CITRULLINE
  4. ANAMIX JR [Concomitant]
  5. PRO-PHREE [Concomitant]

REACTIONS (4)
  - Constipation [Unknown]
  - Hyperammonaemia [Recovered/Resolved]
  - Decreased appetite [Unknown]
  - Dysgeusia [Unknown]

NARRATIVE: CASE EVENT DATE: 20161005
